FAERS Safety Report 5162988-3 (Version None)
Quarter: 2006Q4

REPORT INFORMATION
  Report Type: 
  Country: None (occurrence: None)
  Receive Date: 20061201
  Receipt Date: 20061120
  Transmission Date: 20070319
  Serious: Yes (Other)
  Sender: FDA-Public Use
  Company Number: GB-JNJFOC-20061105210

PATIENT
  Age: 54 Year
  Sex: Female

DRUGS (3)
  1. MICRONOR [Suspect]
     Indication: DRUG USE FOR UNKNOWN INDICATION
     Route: 065
  2. EVOREL [Suspect]
     Indication: HORMONE REPLACEMENT THERAPY
     Route: 062
  3. ST. JOHN'S WORT [Interacting]
     Indication: DRUG USE FOR UNKNOWN INDICATION
     Route: 065

REACTIONS (7)
  - ANXIETY [None]
  - DEPRESSED MOOD [None]
  - DEPRESSION SUICIDAL [None]
  - DRUG INTERACTION [None]
  - MENOPAUSAL SYMPTOMS [None]
  - METRORRHAGIA [None]
  - PANIC ATTACK [None]
